FAERS Safety Report 14764606 (Version 1)
Quarter: 2018Q2

REPORT INFORMATION
  Report Type: Report from Study
  Country: US (occurrence: US)
  Receive Date: 20180416
  Receipt Date: 20180416
  Transmission Date: 20180711
  Serious: Yes (Death, Other)
  Sender: FDA-Public Use
  Company Number: US-ASTELLAS-2018US013235

PATIENT
  Sex: Male

DRUGS (1)
  1. ERLOTINIB [Suspect]
     Active Substance: ERLOTINIB
     Indication: PRODUCT USED FOR UNKNOWN INDICATION
     Dosage: UNK, UNKNOWN FREQ.
     Route: 065

REACTIONS (5)
  - Death [Fatal]
  - Mental disorder [Not Recovered/Not Resolved]
  - Brain neoplasm [Not Recovered/Not Resolved]
  - Gait inability [Not Recovered/Not Resolved]
  - Ill-defined disorder [Not Recovered/Not Resolved]
